FAERS Safety Report 4300444-2 (Version None)
Quarter: 2004Q1

REPORT INFORMATION
  Report Type: 
  Country: None (occurrence: None)
  Receive Date: 20040218
  Receipt Date: 20040203
  Transmission Date: 20041129
  Serious: Yes (Hospitalization, Other)
  Sender: FDA-Public Use
  Company Number: USA040258496

PATIENT
  Age: 76 Year
  Sex: Male

DRUGS (3)
  1. HUMALOG [Suspect]
     Dosage: 25 U/DAY
  2. HUMULIN N [Suspect]
     Dates: end: 20040918
  3. LANTUS [Concomitant]

REACTIONS (6)
  - BLOOD GLUCOSE INCREASED [None]
  - CARDIAC DISORDER [None]
  - INJECTION SITE PAIN [None]
  - LEG AMPUTATION [None]
  - MEDICATION ERROR [None]
  - PHARMACEUTICAL PRODUCT COMPLAINT [None]
